FAERS Safety Report 7250465-5 (Version None)
Quarter: 2011Q1

REPORT INFORMATION
  Report Type: 
  Country: None (occurrence: None)
  Receive Date: 20110128
  Receipt Date: 20110119
  Transmission Date: 20110831
  Serious: Yes (Hospitalization)
  Sender: FDA-Public Use
  Company Number: DE-ASTRAZENECA-2011SE04287

PATIENT
  Age: 56 Year
  Sex: Female

DRUGS (2)
  1. BELOC-ZOK COMP [Suspect]
     Route: 048
     Dates: start: 19970101
  2. BELOC ZOK [Suspect]
     Route: 048
     Dates: start: 19970101

REACTIONS (11)
  - EYE PRURITUS [None]
  - HYPERSENSITIVITY [None]
  - PRURITUS [None]
  - CATHETERISATION CARDIAC [None]
  - NAUSEA [None]
  - RHINORRHOEA [None]
  - BLOOD PRESSURE FLUCTUATION [None]
  - DIARRHOEA [None]
  - DYSPNOEA [None]
  - THROAT TIGHTNESS [None]
  - BURNING SENSATION MUCOSAL [None]
